FAERS Safety Report 10402120 (Version 1)
Quarter: 2014Q3

REPORT INFORMATION
  Report Type: Spontaneous
  Country: US (occurrence: None)
  Receive Date: 20140820
  Receipt Date: 20140820
  Transmission Date: 20150326
  Serious: Yes (Life-Threatening, Hospitalization)
  Sender: FDA-Public Use
  Company Number: None

PATIENT
  Age: 66 Year
  Sex: Male
  Weight: 60.7 kg

DRUGS (1)
  1. BUPROPION [Suspect]
     Active Substance: BUPROPION
     Indication: SCHIZOPHRENIA, PARANOID TYPE
     Dosage: MG
     Route: 048
     Dates: start: 20140116, end: 20140328

REACTIONS (1)
  - Convulsion [None]

NARRATIVE: CASE EVENT DATE: 20140328
